FAERS Safety Report 12552005 (Version 1)
Quarter: 2016Q3

REPORT INFORMATION
  Report Type: Spontaneous
  Country: US (occurrence: None)
  Receive Date: 20160712
  Receipt Date: 20160712
  Transmission Date: 20161109
  Serious: Yes (Disabling)
  Sender: FDA-Public Use
  Company Number: None

PATIENT
  Age: 69 Year
  Sex: Female
  Weight: 64.86 kg

DRUGS (5)
  1. TWINLAB DAILY ONE CAPS [Concomitant]
  2. KIRKLAND VITAMIN D3 [Concomitant]
  3. XARELTO [Concomitant]
     Active Substance: RIVAROXABAN
  4. METOPROLOL SUCC ER 25 MG TAB, UU, 25 MG [Suspect]
     Active Substance: METOPROLOL SUCCINATE
     Indication: ATRIAL FIBRILLATION
     Dosage: 80.5 TABLET(S) 12.5MG BID TAKEN BY MOUTH
     Route: 048
     Dates: start: 20160401, end: 20160625
  5. PHILLIPS COLON HEALTH PROBIOTIC [Concomitant]
     Active Substance: PROBIOTICS NOS

REACTIONS (5)
  - Abdominal distension [None]
  - Heart rate decreased [None]
  - Hypotension [None]
  - Product substitution issue [None]
  - Product formulation issue [None]

NARRATIVE: CASE EVENT DATE: 20160401
